FAERS Safety Report 8673406 (Version 2)
Quarter: 2012Q4

REPORT INFORMATION
  Report Type: 
  Country: GB (occurrence: GB)
  Receive Date: 20120719
  Receipt Date: 20121026
  Transmission Date: 20130627
  Serious: Yes (Hospitalization)
  Sender: FDA-Public Use
  Company Number: PHFR2012GB004053

PATIENT
  Age: 13 Year
  Sex: Female
  Weight: 39 kg

DRUGS (8)
  1. AREDIA [Suspect]
     Indication: OSTEOPOROSIS
     Dosage: 50 mg, every 3 months
     Route: 042
  2. AREDIA [Suspect]
     Dosage: 50 mg, every 3 months
     Route: 042
  3. TACROLIMUS [Concomitant]
     Indication: TRANSPLANT
     Dosage: 3 mg, UNK
     Route: 048
  4. MYCOPHENOLATE MOFETIL [Concomitant]
     Dosage: 1250 mg, UNK
     Route: 048
  5. PREDNISOLONE [Concomitant]
     Dosage: 3 mg, UNK
     Route: 048
  6. LOPERAMIDE [Concomitant]
     Indication: DIARRHOEA
     Dosage: 12 mg, UNK
     Route: 048
  7. CALCIMAX D3 [Concomitant]
     Dosage: UNK UKN, UNK
     Route: 048
  8. TRIMETHOPRIM [Concomitant]
     Indication: PROPHYLAXIS
     Dosage: 100 mg, UNK
     Route: 048

REACTIONS (4)
  - Infection [Unknown]
  - C-reactive protein increased [Unknown]
  - Influenza like illness [Recovered/Resolved]
  - Pyrexia [Recovered/Resolved]
